FAERS Safety Report 23326562 (Version 1)
Quarter: 2023Q4

REPORT INFORMATION
  Report Type: Spontaneous
  Country: US (occurrence: US)
  Receive Date: 20231221
  Receipt Date: 20231221
  Transmission Date: 20240109
  Serious: No
  Sender: FDA-Public Use
  Company Number: US-JAZZ PHARMACEUTICALS-2023-US-018548

PATIENT
  Age: 73 Year
  Sex: Male
  Weight: 90.249 kg

DRUGS (1)
  1. ZEPZELCA [Suspect]
     Active Substance: LURBINECTEDIN
     Indication: Product used for unknown indication
     Dosage: 5.5 MILLIGRAM
     Dates: start: 20230831

REACTIONS (1)
  - Dysuria [Unknown]
